FAERS Safety Report 18472725 (Version 5)
Quarter: 2025Q2

REPORT INFORMATION
  Report Type: Report from Study
  Country: US (occurrence: US)
  Receive Date: 20201106
  Receipt Date: 20250417
  Transmission Date: 20250716
  Serious: Yes (Death, Other)
  Sender: TAKEDA
  Company Number: US-TAKEDA-2020TUS047743

PATIENT
  Age: 64 Year
  Sex: Female
  Weight: 86 kg

DRUGS (3)
  1. PONATINIB [Suspect]
     Active Substance: PONATINIB
     Indication: Vulval cancer
     Dosage: 45 MILLIGRAM, QD
     Dates: start: 201901, end: 202201
  2. PONATINIB [Suspect]
     Active Substance: PONATINIB
     Indication: Genital neoplasm malignant female
     Dosage: 45 MILLIGRAM, QD
     Dates: start: 20200318
  3. PONATINIB [Suspect]
     Active Substance: PONATINIB
     Indication: Squamous cell carcinoma

REACTIONS (8)
  - Death [Fatal]
  - Neuropathy peripheral [Unknown]
  - Blood pressure increased [Recovering/Resolving]
  - Product dose omission issue [Unknown]
  - Off label use [Unknown]
  - Tumour marker increased [Unknown]
  - Dry skin [Not Recovered/Not Resolved]
  - Insomnia [Unknown]

NARRATIVE: CASE EVENT DATE: 20250415
